FAERS Safety Report 13139817 (Version 2)
Quarter: 2017Q1

REPORT INFORMATION
  Report Type: Spontaneous
  Country: US (occurrence: US)
  Receive Date: 20170123
  Receipt Date: 20170220
  Transmission Date: 20170428
  Serious: No
  Sender: FDA-Public Use
  Company Number: US-ELI_LILLY_AND_COMPANY-US201701005429

PATIENT
  Age: 8 Year
  Sex: Female
  Weight: 27.8 kg

DRUGS (5)
  1. TADALAFIL [Suspect]
     Active Substance: TADALAFIL
     Indication: CARDIAC DISORDER
     Dosage: 20 MG, QD
     Route: 048
  2. ENALAPRIL [Concomitant]
     Active Substance: ENALAPRIL
     Indication: PRODUCT USED FOR UNKNOWN INDICATION
     Route: 065
  3. BOSENTAN. [Concomitant]
     Active Substance: BOSENTAN
     Indication: CARDIAC DISORDER
     Dosage: UNK, BID
     Route: 065
  4. LASIX [Concomitant]
     Active Substance: FUROSEMIDE
     Indication: PRODUCT USED FOR UNKNOWN INDICATION
     Route: 065
  5. TYVASO [Suspect]
     Active Substance: TREPROSTINIL
     Indication: CARDIAC DISORDER
     Dosage: 13 DF, EVERY 6 HRS
     Route: 045

REACTIONS (3)
  - Wrong technique in product usage process [Unknown]
  - Off label use [Unknown]
  - Fatigue [Unknown]
